FAERS Safety Report 14391433 (Version 2)
Quarter: 2018Q1

REPORT INFORMATION
  Report Type: Spontaneous
  Country: TR (occurrence: TR)
  Receive Date: 20180116
  Receipt Date: 20180215
  Transmission Date: 20180509
  Serious: Yes (Other)
  Sender: FDA-Public Use
  Company Number: TR-BAYER-2018-003874

PATIENT
  Age: 90 Year
  Sex: Female

DRUGS (4)
  1. MOXIFLOXACIN IV [Suspect]
     Active Substance: MOXIFLOXACIN
     Indication: PNEUMONIA
     Dosage: 400 MG, QD
     Route: 051
  2. DONEPEZIL. [Concomitant]
     Active Substance: DONEPEZIL
     Dosage: DAILY DOSE 10 MG
  3. ESCITALOPRAM [Concomitant]
     Active Substance: ESCITALOPRAM OXALATE
     Dosage: DAILY DOSE 10 MG
  4. QUETIAPINE. [Concomitant]
     Active Substance: QUETIAPINE
     Dosage: DAILY DOSE 200 MG

REACTIONS (1)
  - Hyponatraemia [Recovered/Resolved]
